FAERS Safety Report 10388983 (Version 1)
Quarter: 2014Q1

REPORT INFORMATION
  Report Type: Spontaneous
  Country: US (occurrence: None)
  Receive Date: 20140306
  Receipt Date: 20140306
  Transmission Date: 20141002
  Serious: Yes (Hospitalization)
  Sender: FDA-Public Use
  Company Number: 163-21880-13112622

PATIENT
  Age: 74 Year
  Sex: Male

DRUGS (5)
  1. REVLIMID [Suspect]
     Indication: MYELODYSPLASTIC SYNDROME
     Dosage: 28 IN 28 D
     Route: 048
     Dates: start: 20131017
  2. VITAMIN B12 (CYANOCOBALAMIN) [Concomitant]
  3. PRAVASTATIN SODIUM [Concomitant]
  4. GABAPENTN [Concomitant]
  5. GEMFIBROZIL [Concomitant]

REACTIONS (5)
  - Pneumonia [None]
  - Body temperature increased [None]
  - Rash [None]
  - Muscle spasms [None]
  - Fatigue [None]
